FAERS Safety Report 6657404-6 (Version None)
Quarter: 2010Q1

REPORT INFORMATION
  Report Type: 
  Country: None (occurrence: None)
  Receive Date: 20100330
  Receipt Date: 20100323
  Transmission Date: 20100710
  Serious: Yes (Death)
  Sender: FDA-Public Use
  Company Number: US-SANOFI-AVENTIS-2010SA014550

PATIENT
  Age: 74 Year
  Sex: Male
  Weight: 94.5 kg

DRUGS (14)
  1. MULTAQ [Suspect]
     Route: 048
     Dates: start: 20100303, end: 20100304
  2. TIOTROPIUM BROMIDE [Concomitant]
  3. LEVOTHYROXINE SODIUM [Concomitant]
     Route: 065
  4. KLOR-CON [Concomitant]
     Route: 065
  5. ASPIRIN [Concomitant]
     Route: 065
  6. DIOVAN HCT [Concomitant]
     Route: 065
  7. OMEPRAZOLE [Concomitant]
     Route: 065
  8. FUROSEMIDE [Concomitant]
     Route: 065
  9. TAMSULOSIN HYDROCHLORIDE [Concomitant]
     Route: 065
  10. PREDNISONE TAB [Concomitant]
     Route: 065
  11. METOPROLOL [Concomitant]
     Route: 065
  12. WARFARIN SODIUM [Concomitant]
  13. PRAVASTATIN [Concomitant]
     Route: 065
  14. ALL OTHER THERAPEUTIC PRODUCTS [Concomitant]

REACTIONS (2)
  - PANCREATITIS [None]
  - SEPSIS [None]
